FAERS Safety Report 6924822-8 (Version None)
Quarter: 2010Q3

REPORT INFORMATION
  Report Type: 
  Country: None (occurrence: None)
  Receive Date: 20100816
  Receipt Date: 20100802
  Transmission Date: 20110219
  Serious: Yes (Other)
  Sender: FDA-Public Use
  Company Number: US-JNJFOC-20100800477

PATIENT
  Age: 39 Year
  Sex: Female

DRUGS (1)
  1. REMICADE [Suspect]
     Indication: ARTHRITIS
     Dosage: STARTED 7-8 YEARS AGO
     Route: 042

REACTIONS (4)
  - BLINDNESS [None]
  - CROHN'S DISEASE [None]
  - UVEITIS [None]
  - VASCULAR ACCESS COMPLICATION [None]
